FAERS Safety Report 6032090-7 (Version None)
Quarter: 2008Q4

REPORT INFORMATION
  Report Type: 
  Country: None (occurrence: None)
  Receive Date: 20081222
  Receipt Date: 20081113
  Transmission Date: 20090506
  Serious: No
  Sender: FDA-Public Use
  Company Number: US-WYE-H06840708

PATIENT
  Age: 36 Year
  Sex: Male
  Weight: 77.18 kg

DRUGS (4)
  1. PRISTIQ [Suspect]
     Indication: SMOKING CESSATION THERAPY
     Dosage: REDUCED BY SPLITTING THE TABLET IN HALF, ORAL
     Route: 048
     Dates: start: 20081001, end: 20081106
  2. PRISTIQ [Suspect]
     Indication: SMOKING CESSATION THERAPY
     Dosage: REDUCED BY SPLITTING THE TABLET IN HALF, ORAL
     Route: 048
     Dates: start: 20081107
  3. PROTONIX [Concomitant]
  4. LUNESTA [Concomitant]

REACTIONS (10)
  - ARTHRALGIA [None]
  - DECREASED APPETITE [None]
  - DRUG WITHDRAWAL SYNDROME [None]
  - HEADACHE [None]
  - IMPAIRED DRIVING ABILITY [None]
  - INSOMNIA [None]
  - INTENTIONAL DRUG MISUSE [None]
  - IRRITABILITY [None]
  - MYALGIA [None]
  - PARAESTHESIA [None]
